FAERS Safety Report 5992569-0 (Version None)
Quarter: 2008Q4

REPORT INFORMATION
  Report Type: 
  Country: None (occurrence: None)
  Receive Date: 20081211
  Receipt Date: 20080521
  Transmission Date: 20090506
  Serious: No
  Sender: FDA-Public Use
  Company Number: US-AMGEN-KDL281548

PATIENT
  Sex: Female

DRUGS (4)
  1. ENBREL [Suspect]
     Indication: RHEUMATOID ARTHRITIS
     Route: 058
     Dates: start: 20080424
  2. SULFASALAZINE [Concomitant]
  3. METHOTREXATE [Concomitant]
     Route: 048
  4. PLAQUENIL [Concomitant]
     Route: 048
     Dates: start: 20060801

REACTIONS (1)
  - RHEUMATOID ARTHRITIS [None]
